FAERS Safety Report 14940956 (Version 2)
Quarter: 2018Q4

REPORT INFORMATION
  Report Type: Report from Study
  Country: GB (occurrence: GB)
  Receive Date: 20180525
  Receipt Date: 20181106
  Transmission Date: 20190204
  Serious: Yes (Other)
  Sender: FDA-Public Use
  Company Number: PHHY2018GB006642

PATIENT
  Sex: Female

DRUGS (1)
  1. ERELZI [Suspect]
     Active Substance: ETANERCEPT-SZZS
     Indication: PSORIATIC ARTHROPATHY
     Dosage: 50 MG, QW
     Route: 065
     Dates: start: 20160505

REACTIONS (5)
  - Injury associated with device [Unknown]
  - Skin lesion [Unknown]
  - Device issue [Unknown]
  - Basal cell carcinoma [Unknown]
  - Headache [Unknown]
